FAERS Safety Report 5940872-2 (Version None)
Quarter: 2008Q4

REPORT INFORMATION
  Report Type: 
  Country: None (occurrence: None)
  Receive Date: 20081104
  Receipt Date: 20081029
  Transmission Date: 20090506
  Serious: Yes (Other)
  Sender: FDA-Public Use
  Company Number: US-JNJCH-2008053350

PATIENT
  Age: 2 Year
  Sex: Male
  Weight: 11.8 kg

DRUGS (1)
  1. CHILDREN'S SUDAFED NASAL DECONGESTANT [Suspect]
     Indication: NASAL CONGESTION
     Dosage: TEXT:1 TEASPOON OR LESS EVERY 4 HOURS
     Route: 048

REACTIONS (4)
  - CYANOSIS [None]
  - INCORRECT DOSE ADMINISTERED [None]
  - PARTIAL SEIZURES [None]
  - WRONG DRUG ADMINISTERED [None]
